FAERS Safety Report 8063860-1 (Version None)
Quarter: 2012Q1

REPORT INFORMATION
  Report Type: 
  Country: None (occurrence: None)
  Receive Date: 20120123
  Receipt Date: 20120113
  Transmission Date: 20120608
  Serious: Yes (Hospitalization)
  Sender: FDA-Public Use
  Company Number: FR-MERCK-1201USA02294

PATIENT
  Age: 59 Year
  Sex: Female

DRUGS (18)
  1. PIPERACILLIN/TAZOBACTAM [Concomitant]
     Route: 065
     Dates: start: 20100811, end: 20100101
  2. ASPARAGINASE (AS DRUG) [Concomitant]
     Route: 065
     Dates: start: 20100903, end: 20100912
  3. VINCRISTINE SULFATE [Concomitant]
     Route: 065
     Dates: start: 20100903, end: 20100912
  4. DORIBAX [Concomitant]
     Route: 065
  5. VANCOMYCIN [Concomitant]
     Indication: ANTI-INFECTIVE THERAPY
     Route: 065
  6. ASPARAGINASE (AS DRUG) [Concomitant]
     Indication: ACUTE LYMPHOCYTIC LEUKAEMIA
     Route: 065
     Dates: start: 20100820, end: 20100902
  7. CYCLOPHOSPHAMIDE [Concomitant]
     Indication: ACUTE LYMPHOCYTIC LEUKAEMIA
     Route: 065
     Dates: start: 20100820, end: 20100902
  8. METHOTREXATE [Concomitant]
     Indication: ACUTE LYMPHOCYTIC LEUKAEMIA
     Route: 065
     Dates: start: 20100820, end: 20100902
  9. VINCRISTINE SULFATE [Concomitant]
     Indication: ACUTE LYMPHOCYTIC LEUKAEMIA
     Route: 065
     Dates: start: 20100820, end: 20100902
  10. DEPO-MEDROL [Concomitant]
     Indication: ACUTE LYMPHOCYTIC LEUKAEMIA
     Route: 065
     Dates: start: 20100820, end: 20100902
  11. CANCIDAS [Suspect]
     Route: 048
     Dates: end: 20100901
  12. FLUCONAZOLE [Concomitant]
     Indication: ANTI-INFECTIVE THERAPY
     Route: 065
  13. PREDNISONE [Concomitant]
     Indication: ACUTE LYMPHOCYTIC LEUKAEMIA
     Route: 065
     Dates: start: 20100820, end: 20100902
  14. DAUNORUBICIN [Concomitant]
     Indication: ACUTE LYMPHOCYTIC LEUKAEMIA
     Route: 065
     Dates: start: 20100820, end: 20100902
  15. CYTARABINE [Concomitant]
     Indication: ACUTE LYMPHOCYTIC LEUKAEMIA
     Route: 065
     Dates: start: 20100820, end: 20100902
  16. DAUNORUBICIN [Concomitant]
     Route: 065
     Dates: start: 20100903, end: 20100912
  17. CYCLOPHOSPHAMIDE [Concomitant]
     Route: 065
     Dates: start: 20100903, end: 20100912
  18. TARGOCID [Concomitant]
     Indication: ANTI-INFECTIVE THERAPY
     Route: 065

REACTIONS (2)
  - JAUNDICE [None]
  - CHOLESTASIS [None]
